FAERS Safety Report 7332780-X (Version None)
Quarter: 2011Q1

REPORT INFORMATION
  Report Type: 
  Country: None (occurrence: None)
  Receive Date: 20110304
  Receipt Date: 20101018
  Transmission Date: 20110831
  Serious: Yes (Hospitalization)
  Sender: FDA-Public Use
  Company Number: US-BAYER-201024607NA

PATIENT
  Sex: Female
  Weight: 93.44 kg

DRUGS (6)
  1. YASMIN [Suspect]
  2. OCELLA [Suspect]
     Indication: PREMENSTRUAL SYNDROME
  3. OCELLA [Suspect]
     Indication: CONTRACEPTION
     Dosage: UNK
     Route: 048
     Dates: start: 20090301, end: 20090501
  4. YAZ [Suspect]
     Indication: PREMENSTRUAL SYNDROME
     Dosage: UNK
     Dates: start: 20090601
  5. LEVAQUIN [Concomitant]
     Indication: PNEUMONIA
     Dosage: UNK
  6. YAZ [Suspect]
     Indication: CONTRACEPTION
     Dosage: UNK UNK, UNK
     Route: 048
     Dates: start: 20090601

REACTIONS (1)
  - PULMONARY EMBOLISM [None]
